FAERS Safety Report 4607180-3 (Version None)
Quarter: 2005Q1

REPORT INFORMATION
  Report Type: 
  Country: None (occurrence: None)
  Receive Date: 20050311
  Receipt Date: 20050311
  Transmission Date: 20050727
  Serious: No
  Sender: FDA-Public Use
  Company Number: None

PATIENT
  Sex: Female
  Weight: 80.7403 kg

DRUGS (4)
  1. TRAMADOL HCL [Suspect]
     Indication: ANKLE FRACTURE
     Dosage: 2 TID
     Dates: start: 20050226
  2. WELLBUTRIN [Suspect]
     Indication: MAJOR DEPRESSION
     Dosage: ONE  Q  D
     Dates: start: 20050226
  3. METHYLPHENIDATE [Concomitant]
  4. RELAFEN [Concomitant]

REACTIONS (1)
  - GRAND MAL CONVULSION [None]
